FAERS Safety Report 21265544 (Version 1)
Quarter: 2022Q3

REPORT INFORMATION
  Report Type: Spontaneous
  Country: US (occurrence: US)
  Receive Date: 20220829
  Receipt Date: 20220829
  Transmission Date: 20221026
  Serious: No
  Sender: FDA-Public Use
  Company Number: US-BRISTOL-MYERS SQUIBB COMPANY-2022-097148

PATIENT
  Age: 73 Year
  Sex: Male
  Weight: 79.38 kg

DRUGS (11)
  1. POMALYST [Suspect]
     Active Substance: POMALIDOMIDE
     Indication: Plasma cell myeloma
     Dosage: 21 DAYS ON 7 DAYS OFF
     Route: 048
  2. REVLIMID [Suspect]
     Active Substance: LENALIDOMIDE
     Indication: Plasma cell myeloma
     Dosage: 21 DAYS ON 7 DAYS OFF
     Route: 065
     Dates: start: 202207, end: 202208
  3. CARBIDOPA [Concomitant]
     Active Substance: CARBIDOPA
     Indication: Parkinsonism
     Route: 065
  4. LEVODOPA [Concomitant]
     Active Substance: LEVODOPA
     Indication: Parkinsonism
     Route: 065
  5. HYDROXYUREA [Concomitant]
     Active Substance: HYDROXYUREA
     Indication: Polycythaemia
     Route: 065
  6. BENADRYL [Concomitant]
     Active Substance: DIPHENHYDRAMINE HYDROCHLORIDE
     Route: 065
  7. DARZALEX [Concomitant]
     Active Substance: DARATUMUMAB
     Route: 065
  8. ZOMETA [Concomitant]
     Active Substance: ZOLEDRONIC ACID
     Route: 065
  9. DARATUMUMAB [Concomitant]
     Active Substance: DARATUMUMAB
     Route: 065
  10. BORTEZOMIB [Concomitant]
     Active Substance: BORTEZOMIB
     Route: 065
  11. ZOLEDRONIC [Concomitant]
     Active Substance: ZOLEDRONIC ACID
     Route: 065

REACTIONS (3)
  - Dermatitis diaper [Recovered/Resolved]
  - Urticaria [Unknown]
  - Skin irritation [Unknown]

NARRATIVE: CASE EVENT DATE: 20220701
